FAERS Safety Report 20949792 (Version 3)
Quarter: 2022Q4

REPORT INFORMATION
  Report Type: Spontaneous
  Country: JP (occurrence: JP)
  Receive Date: 20220613
  Receipt Date: 20221005
  Transmission Date: 20230113
  Serious: Yes (Hospitalization, Other)
  Sender: FDA-Public Use
  Company Number: JP-ASTELLAS-2022JP005337

PATIENT
  Age: 6 Decade
  Sex: Male

DRUGS (2)
  1. XOSPATA [Suspect]
     Active Substance: GILTERITINIB
     Indication: Acute myeloid leukaemia recurrent
     Route: 048
     Dates: start: 20220328, end: 20220402
  2. XOSPATA [Suspect]
     Active Substance: GILTERITINIB
     Indication: Acute myeloid leukaemia refractory
     Route: 048
     Dates: start: 20220525

REACTIONS (6)
  - Neuropathy peripheral [Recovered/Resolved]
  - Neuropathy peripheral [Recovering/Resolving]
  - Myelosuppression [Recovering/Resolving]
  - Neutrophil count decreased [Recovering/Resolving]
  - Aortic dissection [Recovered/Resolved]
  - Encephalitis viral [Not Recovered/Not Resolved]

NARRATIVE: CASE EVENT DATE: 20220329
